FAERS Safety Report 9377762 (Version 2)
Quarter: 2013Q3

REPORT INFORMATION
  Report Type: Spontaneous
  Country: US (occurrence: US)
  Receive Date: 20130701
  Receipt Date: 20130730
  Transmission Date: 20140515
  Serious: Yes (Death)
  Sender: FDA-Public Use
  Company Number: US-GILEAD-2013-0077645

PATIENT
  Age: 20 Year
  Sex: Female

DRUGS (11)
  1. CAYSTON [Suspect]
     Indication: CYSTIC FIBROSIS
     Dosage: 75 MG, UNK
     Route: 055
     Dates: end: 201110
  2. CAYSTON [Suspect]
     Indication: PSEUDOMONAS INFECTION
  3. PROZAC [Concomitant]
     Indication: DEPRESSION
     Dosage: 40 MG, UNK
     Route: 048
  4. CREON [Concomitant]
     Indication: MALABSORPTION
     Route: 048
  5. OXYCODONE [Concomitant]
     Indication: PAIN
     Dosage: 5 MG, UNK
     Route: 048
  6. NEXIUM                             /01479302/ [Concomitant]
     Indication: GASTROOESOPHAGEAL REFLUX DISEASE
     Dosage: 40 MG, UNK
     Route: 048
  7. IRON SULFATE [Concomitant]
     Indication: ANAEMIA
     Dosage: 325 MG, UNK
     Route: 048
  8. AZITHROMYCIN [Concomitant]
     Indication: CYSTIC FIBROSIS
     Dosage: 500 MG, UNK
     Route: 048
  9. PULMOZYME [Concomitant]
     Indication: CYSTIC FIBROSIS
     Dosage: 2.5 MG, UNK
     Route: 055
  10. XOPENEX [Concomitant]
     Indication: CYSTIC FIBROSIS
     Dosage: 2 DF, UNK
  11. OLANZAPINE [Concomitant]
     Indication: DIABETES MELLITUS
     Dosage: 5 DF, UNK

REACTIONS (1)
  - Lung disorder [Fatal]
